FAERS Safety Report 5954342-9 (Version None)
Quarter: 2008Q4

REPORT INFORMATION
  Report Type: 
  Country: None (occurrence: None)
  Receive Date: 20081117
  Receipt Date: 20081112
  Transmission Date: 20090506
  Serious: Yes (Hospitalization)
  Sender: FDA-Public Use
  Company Number: FR-WYE-G02370608

PATIENT
  Age: 4 Year
  Sex: Female

DRUGS (1)
  1. ADVIL [Suspect]
     Indication: INFECTION
     Dosage: UNKNOWN
     Route: 048
     Dates: start: 20080601, end: 20080601

REACTIONS (2)
  - DRUG INTOLERANCE [None]
  - GASTRIC HAEMORRHAGE [None]
